FAERS Safety Report 12242112 (Version 1)
Quarter: 2016Q2

REPORT INFORMATION
  Report Type: Spontaneous
  Country: GB (occurrence: GB)
  Receive Date: 20160406
  Receipt Date: 20160406
  Transmission Date: 20160815
  Serious: Yes (Other)
  Sender: FDA-Public Use
  Company Number: GB-GE HEALTHCARE MEDICAL DIAGNOSTICS-OMPQ-PR-1604S-0429

PATIENT
  Age: 40 Year
  Sex: Female
  Weight: 94 kg

DRUGS (14)
  1. SERTRALINE [Concomitant]
     Active Substance: SERTRALINE HYDROCHLORIDE
     Dates: start: 20150506
  2. LANSOPRAZOLE. [Concomitant]
     Active Substance: LANSOPRAZOLE
     Dates: start: 20150506
  3. LEVOTHYROXINE. [Concomitant]
     Active Substance: LEVOTHYROXINE
     Dates: start: 20151211
  4. FEXOFENADINE [Concomitant]
     Active Substance: FEXOFENADINE\FEXOFENADINE HYDROCHLORIDE
     Dates: start: 20150506
  5. OMNIPAQUE [Suspect]
     Active Substance: IOHEXOL
     Indication: PRODUCT USED FOR UNKNOWN INDICATION
     Dosage: DOSE NOT REPORTED
     Route: 065
     Dates: start: 20160323, end: 20160323
  6. AMLODIPINE [Concomitant]
     Active Substance: AMLODIPINE BESYLATE
     Dates: start: 20160205
  7. NICORETTE [Concomitant]
     Active Substance: NICOTINE
     Dates: start: 20160216, end: 20160223
  8. OMNIPAQUE [Suspect]
     Active Substance: IOHEXOL
     Indication: DIAGNOSTIC PROCEDURE
  9. DILTIAZEM HYDROCHLORIDE. [Concomitant]
     Active Substance: DILTIAZEM HYDROCHLORIDE
     Dates: start: 20160307
  10. SIMVASTATIN. [Concomitant]
     Active Substance: SIMVASTATIN
     Dates: start: 20151211
  11. ASPIRIN. [Concomitant]
     Active Substance: ASPIRIN
     Dates: start: 20151217
  12. CONJUGATED ESTROGENS EQUINE [Concomitant]
     Dates: start: 20150506
  13. NICOTINE. [Concomitant]
     Active Substance: NICOTINE
     Dates: start: 20160216, end: 20160301
  14. SOLIFENACIN [Concomitant]
     Active Substance: SOLIFENACIN
     Dates: start: 20150506

REACTIONS (2)
  - Palmar erythema [Unknown]
  - Pruritus generalised [Unknown]

NARRATIVE: CASE EVENT DATE: 20160323
